FAERS Safety Report 18712271 (Version 1)
Quarter: 2021Q1

REPORT INFORMATION
  Report Type: Spontaneous
  Country: US (occurrence: US)
  Receive Date: 20210107
  Receipt Date: 20210107
  Transmission Date: 20210419
  Serious: No
  Sender: FDA-Public Use
  Company Number: US-SA-2021SA004278

PATIENT

DRUGS (2)
  1. LANTUS SOLOSTAR [Suspect]
     Active Substance: INSULIN GLARGINE
     Indication: TYPE 2 DIABETES MELLITUS
     Dosage: 26 UNITS AM AND 34 UNITS PM TWICE DAILY
     Route: 065
  2. APIDRA SOLOSTAR [Concomitant]
     Active Substance: INSULIN GLULISINE
     Dosage: 2?4 DAILY, UNK
     Route: 065

REACTIONS (2)
  - Blood glucose abnormal [Unknown]
  - Inappropriate schedule of product administration [Unknown]
